FAERS Safety Report 8973706 (Version 1)
Quarter: 2012Q4

REPORT INFORMATION
  Report Type: 
  Country: CN (occurrence: CN)
  Receive Date: 20121218
  Receipt Date: 20121218
  Transmission Date: 20130627
  Serious: Yes (Other)
  Sender: FDA-Public Use
  Company Number: PHHY2012CN109910

PATIENT
  Age: 38 Year
  Sex: Male
  Weight: 65 kg

DRUGS (2)
  1. TEGRETOL [Suspect]
     Indication: EPILEPSY
     Dosage: 0.2 g, QD
     Route: 048
     Dates: start: 20101116, end: 20101220
  2. SODIUM VALPROATE [Concomitant]
     Dosage: 1 DF, twice a day

REACTIONS (10)
  - Dermatitis exfoliative [Recovering/Resolving]
  - Rash generalised [Recovering/Resolving]
  - Pruritus generalised [Recovered/Resolved]
  - Papule [Recovering/Resolving]
  - Lip swelling [Recovering/Resolving]
  - Swelling face [Recovering/Resolving]
  - Erythema [Recovering/Resolving]
  - Skin exfoliation [Recovering/Resolving]
  - Roseola [Recovering/Resolving]
  - Hepatic function abnormal [Recovering/Resolving]
